FAERS Safety Report 9843253 (Version 1)
Quarter: 2014Q1

REPORT INFORMATION
  Report Type: Spontaneous
  Country: FR (occurrence: FR)
  Receive Date: 20140124
  Receipt Date: 20140124
  Transmission Date: 20141002
  Serious: Yes (Other)
  Sender: FDA-Public Use
  Company Number: FR-TAKEDA-2014TUS000527

PATIENT
  Sex: 0

DRUGS (1)
  1. ADENURIC [Suspect]
     Dosage: UNK
     Route: 048

REACTIONS (1)
  - Face oedema [Unknown]
